FAERS Safety Report 5098683-9 (Version None)
Quarter: 2006Q3

REPORT INFORMATION
  Report Type: 
  Country: None (occurrence: None)
  Receive Date: 20060907
  Receipt Date: 20060429
  Transmission Date: 20061208
  Serious: Yes (Other)
  Sender: FDA-Public Use
  Company Number: US-BAYER-200611836BCC

PATIENT
  Age: 38 Year
  Sex: Male

DRUGS (4)
  1. MILK OF MAGNESIA TAB [Suspect]
     Indication: CONSTIPATION
     Route: 048
     Dates: start: 20060416, end: 20060416
  2. EX-LAX MAX STR LAX [Suspect]
     Indication: CONSTIPATION
     Route: 048
     Dates: start: 20060416
  3. EX-LAX MAX STR LAX [Suspect]
     Route: 048
     Dates: start: 19960101
  4. PROPECIA [Concomitant]

REACTIONS (4)
  - DIARRHOEA [None]
  - GASTROINTESTINAL MOTILITY DISORDER [None]
  - INTESTINAL OBSTRUCTION [None]
  - OVERDOSE [None]
